FAERS Safety Report 8395865-5 (Version None)
Quarter: 2012Q2

REPORT INFORMATION
  Report Type: 
  Country: None (occurrence: None)
  Receive Date: 20120530
  Receipt Date: 20120522
  Transmission Date: 20120825
  Serious: Yes (Hospitalization)
  Sender: FDA-Public Use
  Company Number: FR-VERTEX PHARMACEUTICALS INC.-000000000000000765

PATIENT
  Sex: Male

DRUGS (3)
  1. COPEGUS [Concomitant]
     Indication: HEPATIC CIRRHOSIS
     Dosage: DOSAGE FORM: TABLET
     Route: 048
     Dates: start: 20111210
  2. INCIVO [Suspect]
     Indication: HEPATIC CIRRHOSIS
     Dosage: DOSAGE FORM: TABLET
     Route: 048
     Dates: start: 20111210, end: 20120310
  3. PEGASYS [Concomitant]
     Indication: HEPATIC CIRRHOSIS
     Dosage: DOSAGE FORM: SOLUTION FOR INJECTION
     Route: 058
     Dates: start: 20111210, end: 20120310

REACTIONS (2)
  - THROMBOCYTOPENIA [None]
  - RASH ERYTHEMATOUS [None]
